FAERS Safety Report 11395359 (Version 1)
Quarter: 2015Q3

REPORT INFORMATION
  Report Type: Spontaneous
  Country: US (occurrence: None)
  Receive Date: 20150817
  Receipt Date: 20150817
  Transmission Date: 20151125
  Serious: Yes (Other)
  Sender: FDA-Public Use
  Company Number: None

PATIENT
  Age: 32 Year
  Sex: Male
  Weight: 76.6 kg

DRUGS (1)
  1. ISOTRETINOIN 40MG [Suspect]
     Active Substance: ISOTRETINOIN
     Indication: ACNE
     Route: 048
     Dates: start: 20150715, end: 20150810

REACTIONS (1)
  - Libido decreased [None]

NARRATIVE: CASE EVENT DATE: 20150810
